FAERS Safety Report 9617488 (Version 10)
Quarter: 2014Q2

REPORT INFORMATION
  Report Type: Spontaneous
  Country: US (occurrence: US)
  Receive Date: 20131011
  Receipt Date: 20140509
  Transmission Date: 20141212
  Serious: Yes (Death, Hospitalization)
  Sender: FDA-Public Use
  Company Number: US-GLAXOSMITHKLINE-A1027300A

PATIENT
  Age: 20 Year
  Sex: Female

DRUGS (2)
  1. FLOLAN [Suspect]
     Indication: PULMONARY ARTERIAL HYPERTENSION
     Dosage: 56NGKM CONTINUOUS
     Route: 042
     Dates: start: 20060707
  2. REVATIO [Concomitant]

REACTIONS (13)
  - Central venous catheterisation [Not Recovered/Not Resolved]
  - Abdominal pain upper [Not Recovered/Not Resolved]
  - Chest pain [Not Recovered/Not Resolved]
  - Imprisonment [Not Recovered/Not Resolved]
  - Dyspnoea [Not Recovered/Not Resolved]
  - Malaise [Not Recovered/Not Resolved]
  - Exposure during pregnancy [Unknown]
  - Intensive care [Not Recovered/Not Resolved]
  - Pulmonary arterial hypertension [Not Recovered/Not Resolved]
  - Drug ineffective [Unknown]
  - Right ventricular failure [Fatal]
  - Live birth [Unknown]
  - Premature labour [Unknown]
